FAERS Safety Report 10130729 (Version 2)
Quarter: 2015Q1

REPORT INFORMATION
  Report Type: Other
  Country: US (occurrence: US)
  Receive Date: 20140428
  Receipt Date: 20150210
  Transmission Date: 20150720
  Serious: Yes (Hospitalization, Other)
  Sender: FDA-Public Use
  Company Number: US-GSKPPD-2014GSK033838

PATIENT
  Age: 72 Year
  Sex: Female

DRUGS (6)
  1. PLAVIX [Concomitant]
     Active Substance: CLOPIDOGREL BISULFATE
  2. METOPROLOL [Concomitant]
     Active Substance: METOPROLOL
  3. AVANDIA [Suspect]
     Active Substance: ROSIGLITAZONE MALEATE
     Indication: DIABETES MELLITUS
     Dosage: DATES OF AVANDIA USE COULD NOT BE CONFIRMED IN RECORDS REVIEWED
     Route: 048
  4. LASIX [Concomitant]
     Active Substance: FUROSEMIDE
  5. ENTERIC COATED ASPIRIN [Concomitant]
     Active Substance: ASPIRIN
  6. CARDIZEM CD [Concomitant]
     Active Substance: DILTIAZEM HYDROCHLORIDE

REACTIONS (1)
  - Brain stem infarction [Recovered/Resolved]

NARRATIVE: CASE EVENT DATE: 20071031
